FAERS Safety Report 6581688-6 (Version None)
Quarter: 2010Q1

REPORT INFORMATION
  Report Type: 
  Country: None (occurrence: None)
  Receive Date: 20100215
  Receipt Date: 20100105
  Transmission Date: 20100710
  Serious: Yes (Death)
  Sender: FDA-Public Use
  Company Number: US-TYCO HEALTHCARE/MALLINCKRODT-T201000195

PATIENT
  Age: 407 Year
  Sex: Female

DRUGS (3)
  1. TRAMADOL [Suspect]
     Dosage: UNK
     Route: 048
  2. TIZANIDINE HCL [Suspect]
     Dosage: UNK
     Route: 048
  3. METAXALONE [Suspect]
     Dosage: UNK
     Route: 048

REACTIONS (1)
  - COMPLETED SUICIDE [None]
